FAERS Safety Report 21342831 (Version 1)
Quarter: 2022Q3

REPORT INFORMATION
  Report Type: Spontaneous
  Country: CA (occurrence: None)
  Receive Date: 20220916
  Receipt Date: 20220916
  Transmission Date: 20221027
  Serious: Yes (Hospitalization, Other)
  Sender: FDA-Public Use
  Company Number: 2020SE07195

PATIENT
  Age: 64 Year
  Sex: Male

DRUGS (6)
  1. SYMBICORT [Suspect]
     Active Substance: BUDESONIDE\FORMOTEROL FUMARATE DIHYDRATE
     Indication: Product used for unknown indication
     Route: 055
  2. MEPOLIZUMAB [Suspect]
     Active Substance: MEPOLIZUMAB
     Indication: Asthma
     Dosage: 100.0MG UNKNOWN
     Route: 042
     Dates: start: 20171219
  3. MEPOLIZUMAB [Suspect]
     Active Substance: MEPOLIZUMAB
     Indication: Product used for unknown indication
     Dosage: 100.0MG UNKNOWN
     Route: 042
     Dates: start: 20171219
  4. VENTOLIN [Suspect]
     Active Substance: ALBUTEROL SULFATE
     Indication: Asthma
     Dosage: 2 PUFFS AS NEEDED2.0DF UNKNOWN
     Route: 055
  5. TIOTROPIUM [Suspect]
     Active Substance: TIOTROPIUM
     Indication: Product used for unknown indication
     Route: 065
  6. SPIRIVA RESPIMAT [Suspect]
     Active Substance: TIOTROPIUM BROMIDE
     Indication: Product used for unknown indication
     Route: 055

REACTIONS (17)
  - Abdominal pain [Unknown]
  - Asthma [Recovering/Resolving]
  - Bone cancer [Unknown]
  - Bronchitis [Recovering/Resolving]
  - Bronchospasm [Unknown]
  - Dyspnoea [Recovering/Resolving]
  - Foreign body in respiratory tract [Unknown]
  - Loss of personal independence in daily activities [Recovering/Resolving]
  - Pneumonia [Unknown]
  - Renal disorder [Unknown]
  - Sleep disorder due to a general medical condition [Recovering/Resolving]
  - Ureteral disorder [Unknown]
  - Urinary tract adhesions [Unknown]
  - Wheezing [Recovering/Resolving]
  - Chest pain [Unknown]
  - General physical health deterioration [Unknown]
  - Emphysema [Unknown]

NARRATIVE: CASE EVENT DATE: 20190201
